FAERS Safety Report 4766558-8 (Version None)
Quarter: 2005Q3

REPORT INFORMATION
  Report Type: 
  Country: None (occurrence: None)
  Receive Date: 20050908
  Receipt Date: 20050829
  Transmission Date: 20060218
  Serious: Yes (Other)
  Sender: FDA-Public Use
  Company Number: 200511775BWH

PATIENT
  Age: 29 Year
  Sex: Male

DRUGS (2)
  1. LEVITRA [Suspect]
     Indication: ERECTILE DYSFUNCTION
     Dates: end: 20050825
  2. IBUPROFEN [Concomitant]

REACTIONS (1)
  - URTICARIA [None]
